FAERS Safety Report 6030026-6 (Version None)
Quarter: 2009Q1

REPORT INFORMATION
  Report Type: 
  Country: None (occurrence: None)
  Receive Date: 20090105
  Receipt Date: 20090105
  Transmission Date: 20090719
  Serious: Yes (Other)
  Sender: FDA-Public Use
  Company Number: None

PATIENT
  Sex: Female
  Weight: 58.9676 kg

DRUGS (1)
  1. BUPROPION HCL [Suspect]

REACTIONS (5)
  - DEPRESSION [None]
  - HEADACHE [None]
  - PRODUCT QUALITY ISSUE [None]
  - SUICIDAL IDEATION [None]
  - WEIGHT INCREASED [None]
